FAERS Safety Report 12870281 (Version 4)
Quarter: 2019Q3

REPORT INFORMATION
  Report Type: Report from Study
  Country: FR (occurrence: FR)
  Receive Date: 20161021
  Receipt Date: 20190906
  Transmission Date: 20191004
  Serious: Yes (Hospitalization, Other)
  Sender: FDA-Public Use
  Company Number: FR-GLAXOSMITHKLINE-FR2016GSK150405

PATIENT
  Sex: Female
  Weight: 81 kg

DRUGS (5)
  1. BELIMUMAB [Suspect]
     Active Substance: BELIMUMAB
     Indication: SYSTEMIC LUPUS ERYTHEMATOSUS
     Dosage: 800 MG, MONTHLY
     Route: 042
     Dates: start: 20150703
  2. CORTANCYL [Concomitant]
     Active Substance: PREDNISONE
     Indication: SYSTEMIC LUPUS ERYTHEMATOSUS
     Dosage: 10 MG, QD, BUCCAL
     Route: 050
     Dates: start: 201106
  3. NIVAQUINE [Concomitant]
     Active Substance: CHLOROQUINE
     Indication: SYSTEMIC LUPUS ERYTHEMATOSUS
     Dosage: 200 MG, QD, BUCCAL
     Route: 050
     Dates: start: 201206
  4. BELIMUMAB [Suspect]
     Active Substance: BELIMUMAB
     Dosage: UNK
     Dates: start: 20160126
  5. NIVAQUINE [Concomitant]
     Active Substance: CHLOROQUINE
     Indication: MALARIA PROPHYLAXIS

REACTIONS (3)
  - Escherichia infection [Recovered/Resolved]
  - Enterococcal infection [Recovered/Resolved]
  - Candida infection [Recovered/Resolved]

NARRATIVE: CASE EVENT DATE: 20151105
